FAERS Safety Report 10190126 (Version 1)
Quarter: 2014Q2

REPORT INFORMATION
  Report Type: Other
  Country: FR (occurrence: FR)
  Receive Date: 20140522
  Receipt Date: 20140522
  Transmission Date: 20141212
  Serious: Yes (Hospitalization)
  Sender: FDA-Public Use
  Company Number: FR-CUBIST PHARMACEUTICAL, INC.-2014CBST000720

PATIENT
  Sex: 0

DRUGS (5)
  1. CUBICIN [Suspect]
     Indication: SEPSIS
     Dosage: 10.4 MG/KG, ONCE DAILY
     Route: 042
     Dates: start: 20140206, end: 20140225
  2. CUBICIN [Interacting]
     Indication: INTERVERTEBRAL DISCITIS
     Dosage: 500 MG, ONCE DAILY
     Route: 042
     Dates: start: 20140206, end: 20140225
  3. CUBICIN [Interacting]
     Indication: OFF LABEL USE
  4. ALEPSAL [Suspect]
     Indication: EPILEPSY
     Dosage: 100 MG, ONCE DAILY
     Route: 048
     Dates: end: 20140306
  5. RIFADINE                           /00146901/ [Interacting]
     Indication: SEPSIS
     Dosage: 600 MG, BID
     Route: 042
     Dates: start: 20140212, end: 20140225

REACTIONS (2)
  - Drug interaction [Recovered/Resolved]
  - Drug ineffective [Recovered/Resolved]
